FAERS Safety Report 23242164 (Version 10)
Quarter: 2025Q3

REPORT INFORMATION
  Report Type: Spontaneous
  Country: CA (occurrence: CA)
  Receive Date: 20231129
  Receipt Date: 20250709
  Transmission Date: 20251021
  Serious: Yes (Death, Life-Threatening, Hospitalization, Disabling, Congenital Anomaly, Other)
  Sender: MYLAN
  Company Number: CA-MYLANLABS-2023M1125039

PATIENT
  Age: 40 Year
  Sex: Female
  Weight: 96 kg

DRUGS (633)
  1. CELECOXIB [Suspect]
     Active Substance: CELECOXIB
     Indication: Product used for unknown indication
     Dosage: 2 DOSAGE FORM, QD (1 EVERY 1 DY)
  2. CELECOXIB [Suspect]
     Active Substance: CELECOXIB
     Dosage: 1 DOSAGE FORM, QD (1 EVERY 1 DY)
  3. CELEBREX [Suspect]
     Active Substance: CELECOXIB
     Indication: Migraine
     Dosage: 1 DOSAGE FORMS, QD (1 EVERY 1 DAYS)
  4. CELEBREX [Suspect]
     Active Substance: CELECOXIB
     Dosage: 2 DOSAGE FORM, QD (1 EVERY 1 DAY)
  5. CELEBREX [Suspect]
     Active Substance: CELECOXIB
     Dosage: 1 DOSAGE FORMS, QD (1 EVERY 1 DAYS)
  6. CELEBREX [Suspect]
     Active Substance: CELECOXIB
  7. CELEBREX [Suspect]
     Active Substance: CELECOXIB
     Dosage: 2 DOSAGE FORMS, QD (1 EVERY 1 DAYS)
  8. VITAMIN C [Suspect]
     Active Substance: ASCORBIC ACID
     Indication: Product used for unknown indication
  9. TOFACITINIB [Suspect]
     Active Substance: TOFACITINIB
     Indication: Rheumatoid arthritis
     Dosage: 5 MILLIGRAM, BID (2 EVERY 1 DAY)
  10. TOFACITINIB [Suspect]
     Active Substance: TOFACITINIB
  11. TOFACITINIB [Suspect]
     Active Substance: TOFACITINIB
     Dosage: 10 MILLIGRAM, QD (1 EVERY 1 DAYS)
  12. TOFACITINIB [Suspect]
     Active Substance: TOFACITINIB
     Dosage: 5 MILLIGRAM, BID (1 IN 12 HOURS)
  13. TOFACITINIB [Suspect]
     Active Substance: TOFACITINIB
     Indication: Rheumatoid arthritis
  14. TOFACITINIB [Suspect]
     Active Substance: TOFACITINIB
     Dosage: 10 MILLIGRAM, QD (1 EVERY 1 DAYS)
  15. TOFACITINIB [Suspect]
     Active Substance: TOFACITINIB
  16. TOFACITINIB [Suspect]
     Active Substance: TOFACITINIB
  17. TOFACITINIB [Suspect]
     Active Substance: TOFACITINIB
  18. TOFACITINIB [Suspect]
     Active Substance: TOFACITINIB
     Dosage: 10 MILLIGRAM, BID (2 EVERY 1 DAYS)
  19. TOFACITINIB [Suspect]
     Active Substance: TOFACITINIB
     Dosage: 5 MILLIGRAM, BID (1 IN 12 HOURS)
  20. TOFACITINIB [Suspect]
     Active Substance: TOFACITINIB
     Indication: Rheumatoid arthritis
     Dosage: 5 MILLIGRAM, BID (2 EVERY 1 DAY)
  21. TOFACITINIB [Suspect]
     Active Substance: TOFACITINIB
  22. TOFACITINIB [Suspect]
     Active Substance: TOFACITINIB
  23. TOFACITINIB [Suspect]
     Active Substance: TOFACITINIB
     Dosage: 5 MILLIGRAM, BID
  24. TOFACITINIB [Suspect]
     Active Substance: TOFACITINIB
     Dosage: 10 MILLIGRAM, QD
  25. ACETAMINOPHEN [Suspect]
     Active Substance: ACETAMINOPHEN
     Indication: Rheumatoid arthritis
  26. ACETAMINOPHEN [Suspect]
     Active Substance: ACETAMINOPHEN
  27. ALENDRONATE [Suspect]
     Active Substance: ALENDRONATE SODIUM
     Indication: Product used for unknown indication
  28. ALENDRONATE [Suspect]
     Active Substance: ALENDRONATE SODIUM
     Indication: Rheumatoid arthritis
  29. ALENDRONATE [Suspect]
     Active Substance: ALENDRONATE SODIUM
  30. ALENDRONATE [Suspect]
     Active Substance: ALENDRONATE SODIUM
  31. ALENDRONATE [Suspect]
     Active Substance: ALENDRONATE SODIUM
  32. ACETAMINOPHEN\CODEINE PHOSPHATE [Suspect]
     Active Substance: ACETAMINOPHEN\CODEINE PHOSPHATE
     Indication: Product used for unknown indication
  33. TOFACITINIB [Suspect]
     Active Substance: TOFACITINIB
     Indication: Rheumatoid arthritis
     Dosage: 5 MILLIGRAM, BID (1 EVERY 12 HOURS)
  34. ALENDRONATE [Suspect]
     Active Substance: ALENDRONATE SODIUM
     Indication: Rheumatoid arthritis
  35. ALENDRONATE [Suspect]
     Active Substance: ALENDRONATE SODIUM
  36. ALENDRONATE [Suspect]
     Active Substance: ALENDRONATE SODIUM
     Indication: Product used for unknown indication
  37. ALENDRONATE SODIUM\CHOLECALCIFEROL [Suspect]
     Active Substance: ALENDRONATE SODIUM\CHOLECALCIFEROL
     Indication: Rheumatoid arthritis
  38. ACETAMINOPHEN [Suspect]
     Active Substance: ACETAMINOPHEN
     Indication: Rheumatoid arthritis
  39. ALENDRONATE [Suspect]
     Active Substance: ALENDRONATE SODIUM
     Indication: Rheumatoid arthritis
  40. ALENDRONATE [Suspect]
     Active Substance: ALENDRONATE SODIUM
  41. ACTEMRA [Suspect]
     Active Substance: TOCILIZUMAB
     Indication: Rheumatoid arthritis
  42. ACTEMRA [Suspect]
     Active Substance: TOCILIZUMAB
  43. ACTEMRA [Suspect]
     Active Substance: TOCILIZUMAB
  44. ACTEMRA [Suspect]
     Active Substance: TOCILIZUMAB
  45. ACTEMRA [Suspect]
     Active Substance: TOCILIZUMAB
  46. ACTEMRA [Suspect]
     Active Substance: TOCILIZUMAB
  47. ACTEMRA [Suspect]
     Active Substance: TOCILIZUMAB
  48. ACTEMRA [Suspect]
     Active Substance: TOCILIZUMAB
  49. ACTEMRA [Suspect]
     Active Substance: TOCILIZUMAB
  50. ACTEMRA [Suspect]
     Active Substance: TOCILIZUMAB
  51. ACTEMRA [Suspect]
     Active Substance: TOCILIZUMAB
  52. ACTEMRA [Suspect]
     Active Substance: TOCILIZUMAB
     Dosage: 25 MILLIGRAM, QW (1 EVERY 1 WEEKS)
  53. ACTEMRA [Suspect]
     Active Substance: TOCILIZUMAB
  54. ACTEMRA [Suspect]
     Active Substance: TOCILIZUMAB
  55. ACTEMRA [Suspect]
     Active Substance: TOCILIZUMAB
  56. ACTEMRA [Suspect]
     Active Substance: TOCILIZUMAB
  57. ACTEMRA [Suspect]
     Active Substance: TOCILIZUMAB
  58. ACTEMRA [Suspect]
     Active Substance: TOCILIZUMAB
  59. ACTEMRA [Suspect]
     Active Substance: TOCILIZUMAB
  60. ACTEMRA [Suspect]
     Active Substance: TOCILIZUMAB
  61. ACTEMRA [Suspect]
     Active Substance: TOCILIZUMAB
  62. ADALIMUMAB [Suspect]
     Active Substance: ADALIMUMAB
     Indication: Rheumatoid arthritis
  63. ADALIMUMAB [Suspect]
     Active Substance: ADALIMUMAB
  64. ADALIMUMAB [Suspect]
     Active Substance: ADALIMUMAB
  65. ADALIMUMAB-ATTO [Suspect]
     Active Substance: ADALIMUMAB-ATTO
     Indication: Rheumatoid arthritis
  66. LEFLUNOMIDE [Suspect]
     Active Substance: LEFLUNOMIDE
     Indication: Rheumatoid arthritis
  67. LEFLUNOMIDE [Suspect]
     Active Substance: LEFLUNOMIDE
  68. LEFLUNOMIDE [Suspect]
     Active Substance: LEFLUNOMIDE
  69. LEFLUNOMIDE [Suspect]
     Active Substance: LEFLUNOMIDE
  70. LEFLUNOMIDE [Suspect]
     Active Substance: LEFLUNOMIDE
     Indication: Product used for unknown indication
  71. APREMILAST [Suspect]
     Active Substance: APREMILAST
     Indication: Rheumatoid arthritis
  72. APREMILAST [Suspect]
     Active Substance: APREMILAST
     Dosage: 6 MILLIGRAM, QD
  73. APREMILAST [Suspect]
     Active Substance: APREMILAST
     Dosage: 3 MILLIGRAM, BID (1 EVERY 12 HOURS)
  74. ARAVA [Suspect]
     Active Substance: LEFLUNOMIDE
     Indication: Rheumatoid arthritis
  75. ARAVA [Suspect]
     Active Substance: LEFLUNOMIDE
     Dosage: 10 MILLIGRAM, QD (1 EVERY 1 DAY)
  76. ARAVA [Suspect]
     Active Substance: LEFLUNOMIDE
     Dosage: 20 MILLIGRAM, QD (1 EVERY 1 DAY)
  77. ARAVA [Suspect]
     Active Substance: LEFLUNOMIDE
  78. ARAVA [Suspect]
     Active Substance: LEFLUNOMIDE
  79. ARAVA [Suspect]
     Active Substance: LEFLUNOMIDE
  80. ARAVA [Suspect]
     Active Substance: LEFLUNOMIDE
  81. CERTOLIZUMAB PEGOL [Suspect]
     Active Substance: CERTOLIZUMAB PEGOL
     Indication: Rheumatoid arthritis
  82. CERTOLIZUMAB PEGOL [Suspect]
     Active Substance: CERTOLIZUMAB PEGOL
  83. CIMZIA [Suspect]
     Active Substance: CERTOLIZUMAB PEGOL
     Indication: Rheumatoid arthritis
  84. CIMZIA [Suspect]
     Active Substance: CERTOLIZUMAB PEGOL
     Indication: Psoriasis
  85. CIMZIA [Suspect]
     Active Substance: CERTOLIZUMAB PEGOL
  86. CIMZIA [Suspect]
     Active Substance: CERTOLIZUMAB PEGOL
  87. CIMZIA [Suspect]
     Active Substance: CERTOLIZUMAB PEGOL
  88. CIMZIA [Suspect]
     Active Substance: CERTOLIZUMAB PEGOL
  89. CIMZIA [Suspect]
     Active Substance: CERTOLIZUMAB PEGOL
     Indication: Rheumatoid arthritis
  90. ENBREL [Suspect]
     Active Substance: ETANERCEPT
     Indication: Rheumatoid arthritis
  91. ENBREL [Suspect]
     Active Substance: ETANERCEPT
  92. ENBREL [Suspect]
     Active Substance: ETANERCEPT
     Indication: Rheumatoid arthritis
  93. ENBREL [Suspect]
     Active Substance: ETANERCEPT
  94. ENBREL [Suspect]
     Active Substance: ETANERCEPT
  95. ENBREL [Suspect]
     Active Substance: ETANERCEPT
     Dosage: 50 MILLIGRAM, QD
  96. ENBREL [Suspect]
     Active Substance: ETANERCEPT
  97. ENBREL [Suspect]
     Active Substance: ETANERCEPT
  98. ENBREL [Suspect]
     Active Substance: ETANERCEPT
     Dosage: 10 MILLIGRAM, QW (1 EVERY 1 WEEKS)
  99. ENBREL [Suspect]
     Active Substance: ETANERCEPT
  100. ENBREL [Suspect]
     Active Substance: ETANERCEPT
     Dosage: 50 MILLIGRAM, QW (1 EVERY 1 WEEKS)
  101. ENBREL [Suspect]
     Active Substance: ETANERCEPT
     Dosage: 10 MILLIGRAM, QW (1 EVERY 1 WEEKS)
  102. ENBREL [Suspect]
     Active Substance: ETANERCEPT
  103. CALCIUM [Suspect]
     Active Substance: CALCIUM
     Indication: Product used for unknown indication
  104. ERELZI [Suspect]
     Active Substance: ETANERCEPT-SZZS
     Indication: Rheumatoid arthritis
  105. ERELZI [Suspect]
     Active Substance: ETANERCEPT-SZZS
  106. ERELZI [Suspect]
     Active Substance: ETANERCEPT-SZZS
     Dosage: 50 MILLIGRAM, QW (1 EVERY 1 WEEKS)
  107. ERELZI [Suspect]
     Active Substance: ETANERCEPT-SZZS
     Indication: Rheumatoid arthritis
     Dosage: 40 MILLIGRAM, QW (ONCE A WEEK)
  108. ERELZI [Suspect]
     Active Substance: ETANERCEPT-SZZS
  109. TRAMADOL [Suspect]
     Active Substance: TRAMADOL
     Indication: Product used for unknown indication
  110. HUMIRA [Suspect]
     Active Substance: ADALIMUMAB
     Indication: Rheumatoid arthritis
     Dosage: 40 MILLIGRAM, QW (1 EVERY 1 WEEK)
  111. HUMIRA [Suspect]
     Active Substance: ADALIMUMAB
  112. HUMIRA [Suspect]
     Active Substance: ADALIMUMAB
  113. HUMIRA [Suspect]
     Active Substance: ADALIMUMAB
  114. HUMIRA [Suspect]
     Active Substance: ADALIMUMAB
     Indication: Rheumatoid arthritis
  115. HUMIRA [Suspect]
     Active Substance: ADALIMUMAB
  116. HUMIRA [Suspect]
     Active Substance: ADALIMUMAB
  117. HUMIRA [Suspect]
     Active Substance: ADALIMUMAB
  118. LEFLUNOMIDE [Suspect]
     Active Substance: LEFLUNOMIDE
     Indication: Rheumatoid arthritis
  119. LEFLUNOMIDE [Suspect]
     Active Substance: LEFLUNOMIDE
  120. LEFLUNOMIDE [Suspect]
     Active Substance: LEFLUNOMIDE
     Dosage: 20 MILLIGRAM, QD (1 EVERY 1 DAYS)
  121. LEFLUNOMIDE [Suspect]
     Active Substance: LEFLUNOMIDE
  122. LEFLUNOMIDE [Suspect]
     Active Substance: LEFLUNOMIDE
     Dosage: 10 MILLIGRAM, QD (1 EVERY 1 DAYS)
  123. LEFLUNOMIDE [Suspect]
     Active Substance: LEFLUNOMIDE
     Dosage: UNK, QD (1 EVERY 1 DAYS)
  124. LEFLUNOMIDE [Suspect]
     Active Substance: LEFLUNOMIDE
     Dosage: 10 MILLIGRAM, QD (1 EVERY 1 DAYS)
  125. LEFLUNOMIDE [Suspect]
     Active Substance: LEFLUNOMIDE
  126. LEFLUNOMIDE [Suspect]
     Active Substance: LEFLUNOMIDE
     Indication: Rheumatoid arthritis
  127. LEFLUNOMIDE [Suspect]
     Active Substance: LEFLUNOMIDE
  128. LEFLUNOMIDE [Suspect]
     Active Substance: LEFLUNOMIDE
     Dosage: 20 MILLIGRAM, QD (1 EVERY 1 DAYS)
  129. LEFLUNOMIDE [Suspect]
     Active Substance: LEFLUNOMIDE
     Dosage: 10 MILLIGRAM, QD (1 EVERY 1 DAYS)
  130. LEFLUNOMIDE [Suspect]
     Active Substance: LEFLUNOMIDE
  131. LEFLUNOMIDE [Suspect]
     Active Substance: LEFLUNOMIDE
     Dosage: 10 MILLIGRAM, QD (1 EVERY 1 DAYS)
  132. METHOTREXATE [Suspect]
     Active Substance: METHOTREXATE
     Indication: Rheumatoid arthritis
  133. METHOTREXATE [Suspect]
     Active Substance: METHOTREXATE
     Dosage: 20 MILLIGRAM, QW (1 EVERY 1 WEEK)
  134. METHOTREXATE [Suspect]
     Active Substance: METHOTREXATE
  135. METHOTREXATE [Suspect]
     Active Substance: METHOTREXATE
  136. METHOTREXATE [Suspect]
     Active Substance: METHOTREXATE
  137. METHOTREXATE [Suspect]
     Active Substance: METHOTREXATE
     Dosage: 15 MILLIGRAM, QW (1 EVERY 1 WEEK)
  138. MINOCYCLINE HYDROCHLORIDE [Suspect]
     Active Substance: MINOCYCLINE HYDROCHLORIDE
     Indication: Rheumatoid arthritis
  139. MYOCHRYSINE [Suspect]
     Active Substance: GOLD SODIUM THIOMALATE
     Indication: Rheumatoid arthritis
  140. MYOCHRYSINE [Suspect]
     Active Substance: GOLD SODIUM THIOMALATE
  141. MYOCHRYSINE [Suspect]
     Active Substance: GOLD SODIUM THIOMALATE
     Indication: Rheumatoid arthritis
  142. MYOCHRYSINE [Suspect]
     Active Substance: GOLD SODIUM THIOMALATE
  143. CALCIUM GLUBIONATE [Suspect]
     Active Substance: CALCIUM GLUBIONATE
     Indication: Product used for unknown indication
  144. ORENCIA [Suspect]
     Active Substance: ABATACEPT
     Indication: Rheumatoid arthritis
  145. ORENCIA [Suspect]
     Active Substance: ABATACEPT
  146. ATOMOXETINE [Suspect]
     Active Substance: ATOMOXETINE
     Indication: Migraine
  147. ATOMOXETINE [Suspect]
     Active Substance: ATOMOXETINE
     Dosage: 1 DOSAGE FORM, QD (1 EVERY 1 DAYS)
  148. ATOMOXETINE [Suspect]
     Active Substance: ATOMOXETINE
  149. ORENCIA [Suspect]
     Active Substance: ABATACEPT
     Indication: Rheumatoid arthritis
  150. ORENCIA [Suspect]
     Active Substance: ABATACEPT
  151. ORENCIA [Suspect]
     Active Substance: ABATACEPT
  152. ORENCIA [Suspect]
     Active Substance: ABATACEPT
  153. ORENCIA [Suspect]
     Active Substance: ABATACEPT
  154. ORENCIA [Suspect]
     Active Substance: ABATACEPT
  155. ORENCIA [Suspect]
     Active Substance: ABATACEPT
     Dosage: 125 MILLIGRAM, QW (1 EVERY 1 WEEKS)
  156. ORENCIA [Suspect]
     Active Substance: ABATACEPT
  157. ORENCIA [Suspect]
     Active Substance: ABATACEPT
  158. ORENCIA [Suspect]
     Active Substance: ABATACEPT
  159. ORENCIA [Suspect]
     Active Substance: ABATACEPT
  160. ORENCIA [Suspect]
     Active Substance: ABATACEPT
  161. OTEZLA [Suspect]
     Active Substance: APREMILAST
     Indication: Rheumatoid arthritis
  162. OTEZLA [Suspect]
     Active Substance: APREMILAST
  163. OTEZLA [Suspect]
     Active Substance: APREMILAST
     Dosage: 3 MILLIGRAM, BID (1 EVERY 12 HOURS)
  164. OTEZLA [Suspect]
     Active Substance: APREMILAST
     Indication: Rheumatoid arthritis
  165. RITUXIMAB [Suspect]
     Active Substance: RITUXIMAB
     Indication: Rheumatoid arthritis
  166. RITUXIMAB [Suspect]
     Active Substance: RITUXIMAB
  167. RITUXIMAB [Suspect]
     Active Substance: RITUXIMAB
     Indication: Rheumatoid arthritis
  168. RITUXIMAB [Suspect]
     Active Substance: RITUXIMAB
  169. RITUXIMAB [Suspect]
     Active Substance: RITUXIMAB
  170. RITUXIMAB [Suspect]
     Active Substance: RITUXIMAB
     Dosage: 2000 MILLIGRAM, QD (1 EVERY 1 DAYS)
  171. RITUXIMAB [Suspect]
     Active Substance: RITUXIMAB
  172. RITUXIMAB [Suspect]
     Active Substance: RITUXIMAB
  173. RITUXIMAB [Suspect]
     Active Substance: RITUXIMAB
     Dosage: 1000 MILLIGRAM, BID (1 EVERY 12 HOURS)
  174. RITUXIMAB [Suspect]
     Active Substance: RITUXIMAB
  175. RITUXIMAB [Suspect]
     Active Substance: RITUXIMAB
  176. RITUXIMAB [Suspect]
     Active Substance: RITUXIMAB
     Dosage: 1000 MILLIGRAM, BID (1 EVERY 12 HOURS)
  177. RITUXIMAB [Suspect]
     Active Substance: RITUXIMAB
     Dosage: 1 GRAM, BID (1 EVERY 12 HOURS)
  178. RITUXIMAB [Suspect]
     Active Substance: RITUXIMAB
     Dosage: UNK, BID (1 EVERY 12 HOURS)
  179. RITUXIMAB [Suspect]
     Active Substance: RITUXIMAB
     Dosage: 1000 MILLIGRAM, BID (1 EVERY 12 HOURS)
  180. RITUXIMAB [Suspect]
     Active Substance: RITUXIMAB
     Dosage: 2000 MILLIGRAM, QD (1 EVERY 1 DAYS)
  181. RITUXIMAB [Suspect]
     Active Substance: RITUXIMAB
  182. RITUXIMAB [Suspect]
     Active Substance: RITUXIMAB
     Dosage: 2 GRAM, QD (1 EVERY 1 DAYS)
  183. RITUXIMAB [Suspect]
     Active Substance: RITUXIMAB
     Dosage: 2000 MILLIGRAM, QD (1 EVERY 1 DAYS)
  184. SULFASALAZINE [Suspect]
     Active Substance: SULFASALAZINE
     Indication: Rheumatoid arthritis
  185. SULFASALAZINE [Suspect]
     Active Substance: SULFASALAZINE
  186. SIMPONI [Suspect]
     Active Substance: GOLIMUMAB
     Indication: Rheumatoid arthritis
  187. SIMPONI [Suspect]
     Active Substance: GOLIMUMAB
  188. SIMPONI [Suspect]
     Active Substance: GOLIMUMAB
  189. SIMPONI [Suspect]
     Active Substance: GOLIMUMAB
  190. SIMPONI [Suspect]
     Active Substance: GOLIMUMAB
  191. SIMPONI [Suspect]
     Active Substance: GOLIMUMAB
  192. SIMPONI [Suspect]
     Active Substance: GOLIMUMAB
  193. SIMPONI [Suspect]
     Active Substance: GOLIMUMAB
  194. SIMPONI [Suspect]
     Active Substance: GOLIMUMAB
     Indication: Rheumatoid arthritis
  195. SIRUKUMAB [Suspect]
     Active Substance: SIRUKUMAB
     Indication: Rheumatoid arthritis
  196. GOLD SODIUM THIOMALATE [Suspect]
     Active Substance: GOLD SODIUM THIOMALATE
     Indication: Rheumatoid arthritis
  197. GOLD SODIUM THIOMALATE [Suspect]
     Active Substance: GOLD SODIUM THIOMALATE
  198. GOLD SODIUM THIOMALATE [Suspect]
     Active Substance: GOLD SODIUM THIOMALATE
     Indication: Rheumatoid arthritis
  199. GOLD SODIUM THIOMALATE [Suspect]
     Active Substance: GOLD SODIUM THIOMALATE
  200. STELARA [Suspect]
     Active Substance: USTEKINUMAB
     Indication: Rheumatoid arthritis
  201. STELARA [Suspect]
     Active Substance: USTEKINUMAB
  202. STELARA [Suspect]
     Active Substance: USTEKINUMAB
     Indication: Rheumatoid arthritis
  203. SULFASALAZINE [Suspect]
     Active Substance: SULFASALAZINE
     Indication: Rheumatoid arthritis
  204. SULFASALAZINE [Suspect]
     Active Substance: SULFASALAZINE
  205. SULFASALAZINE [Suspect]
     Active Substance: SULFASALAZINE
  206. SULFASALAZINE [Suspect]
     Active Substance: SULFASALAZINE
     Dosage: 300 MILLIGRAM, QD (1 IN 1 DAY)
  207. SULFASALAZINE [Suspect]
     Active Substance: SULFASALAZINE
     Dosage: 1000 MILLIGRAM, BID (2 EVERY 1 DAY)
  208. SULFASALAZINE [Suspect]
     Active Substance: SULFASALAZINE
  209. SULFASALAZINE [Suspect]
     Active Substance: SULFASALAZINE
  210. SULFASALAZINE [Suspect]
     Active Substance: SULFASALAZINE
     Dosage: 1 DOSAGE FORM, BID
  211. SULFASALAZINE [Suspect]
     Active Substance: SULFASALAZINE
     Dosage: 1 GRAM, BID
  212. SULFASALAZINE [Suspect]
     Active Substance: SULFASALAZINE
  213. SULFASALAZINE [Suspect]
     Active Substance: SULFASALAZINE
     Dosage: UNK, QD (1 EVERY 1 DAYS)
  214. SULFASALAZINE [Suspect]
     Active Substance: SULFASALAZINE
     Dosage: 1 GRAM, QD (1 EVERY 1 DAYS)
  215. SULFASALAZINE [Suspect]
     Active Substance: SULFASALAZINE
  216. SULFASALAZINE [Suspect]
     Active Substance: SULFASALAZINE
  217. SULFASALAZINE [Suspect]
     Active Substance: SULFASALAZINE
  218. SULFASALAZINE [Suspect]
     Active Substance: SULFASALAZINE
     Dosage: 2 GRAM, QD (1 EVERY 1 DAYS)
  219. SULFASALAZINE [Suspect]
     Active Substance: SULFASALAZINE
     Dosage: 1 DOSAGE FORM, BID (1 EVERY 12HOURS)
  220. SULFASALAZINE [Suspect]
     Active Substance: SULFASALAZINE
     Dosage: 2 MILLIGRAM, BID (1 EVERY 12 HOURS)
  221. SULFASALAZINE [Suspect]
     Active Substance: SULFASALAZINE
  222. SULFASALAZINE [Suspect]
     Active Substance: SULFASALAZINE
     Dosage: 1 GRAM, BID (1 EVERY 12 HOURS)
  223. SULFASALAZINE [Suspect]
     Active Substance: SULFASALAZINE
  224. SULFASALAZINE [Suspect]
     Active Substance: SULFASALAZINE
     Dosage: 1 GRAM, QD (1 EVERY 1 DAYS)
  225. SULFASALAZINE [Suspect]
     Active Substance: SULFASALAZINE
  226. SULFASALAZINE [Suspect]
     Active Substance: SULFASALAZINE
     Dosage: 1 GRAM, BID (1 EVERY 12 HOURS)
  227. SULFASALAZINE [Suspect]
     Active Substance: SULFASALAZINE
     Dosage: 2 GRAM, QD (1 EVERY 1 DAYS)
  228. SULFASALAZINE [Suspect]
     Active Substance: SULFASALAZINE
  229. SULFASALAZINE [Suspect]
     Active Substance: SULFASALAZINE
     Dosage: 300 MILLIGRAM, QD (1 IN 1 DAY)
  230. SULFASALAZINE [Suspect]
     Active Substance: SULFASALAZINE
     Dosage: 2 GRAM, QD (1 EVERY 1 DAYS)
  231. SULFASALAZINE [Suspect]
     Active Substance: SULFASALAZINE
  232. SULFASALAZINE [Suspect]
     Active Substance: SULFASALAZINE
     Dosage: 2 DOSAGE FORM, QD (1 EVERY 1 DAYS)
  233. SULFASALAZINE [Suspect]
     Active Substance: SULFASALAZINE
  234. SULFASALAZINE [Suspect]
     Active Substance: SULFASALAZINE
     Dosage: 1000 MILLIGRAM, QD (1 EVERY 1 DAYS)
  235. SULFASALAZINE [Suspect]
     Active Substance: SULFASALAZINE
     Dosage: 2000 MILLIGRAM, QD (1 EVERY 1 DAYS)
  236. SULFASALAZINE [Suspect]
     Active Substance: SULFASALAZINE
     Dosage: 500 MILLIGRAM, QD (1 EVERY 1 DAYS)
  237. SULFASALAZINE [Suspect]
     Active Substance: SULFASALAZINE
  238. SULFASALAZINE [Suspect]
     Active Substance: SULFASALAZINE
     Dosage: 4 MILLIGRAM, QD (1 EVERY 1 DAYS)
  239. SULFASALAZINE [Suspect]
     Active Substance: SULFASALAZINE
     Dosage: UNK, QD (1 EVERY 1 DAYS)
  240. TOCILIZUMAB [Suspect]
     Active Substance: TOCILIZUMAB
     Indication: Rheumatoid arthritis
  241. TOCILIZUMAB [Suspect]
     Active Substance: TOCILIZUMAB
  242. TOCILIZUMAB [Suspect]
     Active Substance: TOCILIZUMAB
  243. TOCILIZUMAB [Suspect]
     Active Substance: TOCILIZUMAB
  244. TOCILIZUMAB [Suspect]
     Active Substance: TOCILIZUMAB
  245. TOCILIZUMAB [Suspect]
     Active Substance: TOCILIZUMAB
  246. TOCILIZUMAB [Suspect]
     Active Substance: TOCILIZUMAB
     Dosage: 5 MILLIGRAM, BID
  247. TOCILIZUMAB [Suspect]
     Active Substance: TOCILIZUMAB
  248. USTEKINUMAB [Suspect]
     Active Substance: USTEKINUMAB
     Indication: Rheumatoid arthritis
  249. USTEKINUMAB [Suspect]
     Active Substance: USTEKINUMAB
     Indication: Rheumatoid arthritis
  250. USTEKINUMAB [Suspect]
     Active Substance: USTEKINUMAB
  251. USTEKINUMAB [Suspect]
     Active Substance: USTEKINUMAB
  252. USTEKINUMAB [Suspect]
     Active Substance: USTEKINUMAB
  253. ARAVA [Suspect]
     Active Substance: LEFLUNOMIDE
     Indication: Rheumatoid arthritis
  254. ARAVA [Suspect]
     Active Substance: LEFLUNOMIDE
  255. ARAVA [Suspect]
     Active Substance: LEFLUNOMIDE
     Dosage: 20 MILLIGRAM, QD (1 EVERY 1 DAYS)
  256. ARAVA [Suspect]
     Active Substance: LEFLUNOMIDE
  257. AIMOVIG [Suspect]
     Active Substance: ERENUMAB-AOOE
     Indication: Migraine
  258. PREDNISONE [Suspect]
     Active Substance: PREDNISONE
     Indication: Rheumatoid arthritis
  259. PREDNISONE [Suspect]
     Active Substance: PREDNISONE
     Dosage: 20 MILLIGRAM, QD (1 EVERY 1 DAYS)
  260. PREDNISONE [Suspect]
     Active Substance: PREDNISONE
  261. PREDNISONE [Suspect]
     Active Substance: PREDNISONE
  262. PREDNISONE [Suspect]
     Active Substance: PREDNISONE
     Dosage: UNK, QD (1 EVERY 1 DAYS)
  263. PREDNISONE [Suspect]
     Active Substance: PREDNISONE
  264. PREDNISONE [Suspect]
     Active Substance: PREDNISONE
  265. PREDNISONE [Suspect]
     Active Substance: PREDNISONE
  266. PREDNISONE [Suspect]
     Active Substance: PREDNISONE
  267. PREDNISONE [Suspect]
     Active Substance: PREDNISONE
  268. AZATHIOPRINE SODIUM [Suspect]
     Active Substance: AZATHIOPRINE SODIUM
     Indication: Product used for unknown indication
  269. CETIRIZINE HYDROCHLORIDE [Suspect]
     Active Substance: CETIRIZINE HYDROCHLORIDE
     Indication: Product used for unknown indication
  270. CETIRIZINE HYDROCHLORIDE [Suspect]
     Active Substance: CETIRIZINE HYDROCHLORIDE
  271. CETIRIZINE HYDROCHLORIDE [Suspect]
     Active Substance: CETIRIZINE HYDROCHLORIDE
  272. CETIRIZINE HYDROCHLORIDE [Suspect]
     Active Substance: CETIRIZINE HYDROCHLORIDE
  273. CETIRIZINE HYDROCHLORIDE [Suspect]
     Active Substance: CETIRIZINE HYDROCHLORIDE
  274. CETIRIZINE HYDROCHLORIDE [Suspect]
     Active Substance: CETIRIZINE HYDROCHLORIDE
  275. CORTISONE [Suspect]
     Active Substance: CORTISONE
     Indication: Rheumatoid arthritis
  276. CORTISONE [Suspect]
     Active Substance: CORTISONE
  277. CORTISONE ACETATE [Suspect]
     Active Substance: CORTISONE ACETATE
     Indication: Rheumatoid arthritis
  278. CORTISONE ACETATE [Suspect]
     Active Substance: CORTISONE ACETATE
  279. CORTISONE ACETATE [Suspect]
     Active Substance: CORTISONE ACETATE
  280. CORTISONE ACETATE [Suspect]
     Active Substance: CORTISONE ACETATE
  281. COSENTYX [Suspect]
     Active Substance: SECUKINUMAB
     Indication: Psoriatic arthropathy
  282. COSENTYX [Suspect]
     Active Substance: SECUKINUMAB
  283. DESOXIMETASONE [Suspect]
     Active Substance: DESOXIMETASONE
     Indication: Rheumatoid arthritis
  284. DESOXIMETASONE [Suspect]
     Active Substance: DESOXIMETASONE
  285. DESOXIMETASONE [Suspect]
     Active Substance: DESOXIMETASONE
  286. DESOXIMETASONE [Suspect]
     Active Substance: DESOXIMETASONE
  287. DESOXIMETASONE [Suspect]
     Active Substance: DESOXIMETASONE
  288. DICLOFENAC [Suspect]
     Active Substance: DICLOFENAC
     Indication: Product used for unknown indication
  289. FLUMETHASONE [Suspect]
     Active Substance: FLUMETHASONE
     Indication: Product used for unknown indication
  290. FOLIC ACID [Suspect]
     Active Substance: FOLIC ACID
     Indication: Product used for unknown indication
  291. FOLIC ACID [Suspect]
     Active Substance: FOLIC ACID
  292. FOLIC ACID [Suspect]
     Active Substance: FOLIC ACID
  293. FOLIC ACID [Suspect]
     Active Substance: FOLIC ACID
  294. FOLIC ACID [Suspect]
     Active Substance: FOLIC ACID
  295. FOLIC ACID [Suspect]
     Active Substance: FOLIC ACID
  296. FOLIC ACID [Suspect]
     Active Substance: FOLIC ACID
  297. FOLIC ACID [Suspect]
     Active Substance: FOLIC ACID
  298. GOLD [Suspect]
     Active Substance: GOLD
     Indication: Product used for unknown indication
  299. SODIUM THIOMALATE [Suspect]
     Active Substance: SODIUM THIOMALATE
     Indication: Product used for unknown indication
  300. HYDROCORTISONE [Suspect]
     Active Substance: HYDROCORTISONE
     Indication: Rheumatoid arthritis
  301. HYDROXYCHLOROQUINE [Suspect]
     Active Substance: HYDROXYCHLOROQUINE
     Indication: Rheumatoid arthritis
  302. HYDROXYCHLOROQUINE [Suspect]
     Active Substance: HYDROXYCHLOROQUINE
     Dosage: 400 MILLIGRAM, QD (1 EVERY 1 DAYS)
  303. HYDROXYCHLOROQUINE [Suspect]
     Active Substance: HYDROXYCHLOROQUINE
     Dosage: 400 MILLIGRAM, QD (1 EVERY 1 DAYS)
  304. HYDROXYCHLOROQUINE [Suspect]
     Active Substance: HYDROXYCHLOROQUINE
     Dosage: UNK, QD (1 EVERY 1 DAYS)
  305. HYDROXYCHLOROQUINE [Suspect]
     Active Substance: HYDROXYCHLOROQUINE
     Dosage: UNK, QD (1 EVERY 1 DAYS)
  306. HYDROXYCHLOROQUINE [Suspect]
     Active Substance: HYDROXYCHLOROQUINE
  307. HYDROXYCHLOROQUINE [Suspect]
     Active Substance: HYDROXYCHLOROQUINE
  308. HYDROXYCHLOROQUINE [Suspect]
     Active Substance: HYDROXYCHLOROQUINE
  309. HYDROXYCHLOROQUINE [Suspect]
     Active Substance: HYDROXYCHLOROQUINE
  310. HYDROXYCHLOROQUINE [Suspect]
     Active Substance: HYDROXYCHLOROQUINE
  311. HYDROXYCHLOROQUINE [Suspect]
     Active Substance: HYDROXYCHLOROQUINE
  312. HYDROXYCHLOROQUINE [Suspect]
     Active Substance: HYDROXYCHLOROQUINE
  313. HYDROXYCHLOROQUINE [Suspect]
     Active Substance: HYDROXYCHLOROQUINE
  314. HYDROXYCHLOROQUINE [Suspect]
     Active Substance: HYDROXYCHLOROQUINE
     Dosage: 40 MILLIGRAM, QD (1 EVERY 1 DAYS)
  315. HYDROXYCHLOROQUINE [Suspect]
     Active Substance: HYDROXYCHLOROQUINE
     Dosage: 4000 MILLIGRAM, QD (1 EVERY 1 DAYS)
  316. HYDROXYCHLOROQUINE [Suspect]
     Active Substance: HYDROXYCHLOROQUINE
     Indication: Rheumatoid arthritis
  317. HYDROXYCHLOROQUINE [Suspect]
     Active Substance: HYDROXYCHLOROQUINE
  318. HYDROXYCHLOROQUINE [Suspect]
     Active Substance: HYDROXYCHLOROQUINE
     Dosage: 400 MILLIGRAM, QD (1 EVERY 1 DAYS)
  319. INFLIXIMAB [Suspect]
     Active Substance: INFLIXIMAB
     Indication: Rheumatoid arthritis
  320. INFLIXIMAB [Suspect]
     Active Substance: INFLIXIMAB
  321. INFLIXIMAB [Suspect]
     Active Substance: INFLIXIMAB
  322. KEVZARA [Suspect]
     Active Substance: SARILUMAB
     Indication: Product used for unknown indication
  323. METHOTREXATE [Suspect]
     Active Substance: METHOTREXATE
     Indication: Rheumatoid arthritis
  324. METHOTREXATE [Suspect]
     Active Substance: METHOTREXATE
  325. METHOTREXATE [Suspect]
     Active Substance: METHOTREXATE
  326. METHOTREXATE [Suspect]
     Active Substance: METHOTREXATE
     Dosage: 25 MILLIGRAM, QD (1 EVERY 1 DAYS)
  327. METHOTREXATE [Suspect]
     Active Substance: METHOTREXATE
  328. METHOTREXATE [Suspect]
     Active Substance: METHOTREXATE
  329. METHOTREXATE [Suspect]
     Active Substance: METHOTREXATE
     Dosage: 20 MILLIGRAM, QD (1 EVERY 1 DAYS)
  330. METHOTREXATE [Suspect]
     Active Substance: METHOTREXATE
     Dosage: 25 MILLIGRAM, QW (1 EVERY 1 WEEKS)
  331. METHOTREXATE [Suspect]
     Active Substance: METHOTREXATE
     Dosage: 25 MILLIGRAM, QW
  332. METHOTREXATE [Suspect]
     Active Substance: METHOTREXATE
  333. METHOTREXATE [Suspect]
     Active Substance: METHOTREXATE
  334. METHOTREXATE [Suspect]
     Active Substance: METHOTREXATE
  335. METHOTREXATE [Suspect]
     Active Substance: METHOTREXATE
  336. METHOTREXATE [Suspect]
     Active Substance: METHOTREXATE
     Dosage: 25 MILLIGRAM, QW (1 EVERY 1WEEKS)
  337. METHOTREXATE [Suspect]
     Active Substance: METHOTREXATE
     Dosage: 25 MILLIGRAM, BID (1 EVERY 12 HOURS)
  338. METHOTREXATE [Suspect]
     Active Substance: METHOTREXATE
     Dosage: 25 MILLIGRAM, QW (1 EVERY 1 WEEKS)
  339. METHOTREXATE [Suspect]
     Active Substance: METHOTREXATE
     Dosage: 20 MILLIGRAM, QW (1 EVERY 1 WEEKS)
  340. METHOTREXATE [Suspect]
     Active Substance: METHOTREXATE
     Dosage: 20 MILLIGRAM, QW (1 EVERY 1 WEEKS)
  341. METHOTREXATE [Suspect]
     Active Substance: METHOTREXATE
     Dosage: 25 MILLIGRAM, QW (1 EVERY 1WEEKS)
  342. METHOTREXATE [Suspect]
     Active Substance: METHOTREXATE
     Dosage: 15 MILLIGRAM, QW (1 EVERY 1WEEKS)
  343. METHOTREXATE [Suspect]
     Active Substance: METHOTREXATE
  344. METHOTREXATE [Suspect]
     Active Substance: METHOTREXATE
  345. METHOTREXATE [Suspect]
     Active Substance: METHOTREXATE
  346. METHOTREXATE [Suspect]
     Active Substance: METHOTREXATE
     Dosage: 25 MILLIGRAM, QD (1 EVERY 1 DAY)
  347. METHOTREXATE [Suspect]
     Active Substance: METHOTREXATE
     Dosage: 50 MILLIGRAM, QD (1 EVERY 1 DAY)
  348. METHYLPREDNISOLONE [Suspect]
     Active Substance: METHYLPREDNISOLONE
     Indication: Rheumatoid arthritis
  349. METHYLPREDNISOLONE [Suspect]
     Active Substance: METHYLPREDNISOLONE
  350. MINOCIN [Suspect]
     Active Substance: MINOCYCLINE HYDROCHLORIDE
     Indication: Rheumatoid arthritis
  351. MINOCYCLINE [Suspect]
     Active Substance: MINOCYCLINE HYDROCHLORIDE
     Indication: Rheumatoid arthritis
  352. PHTHALYLSULFATHIAZOLE [Suspect]
     Active Substance: PHTHALYLSULFATHIAZOLE
     Indication: Rheumatoid arthritis
  353. PHTHALYLSULFATHIAZOLE [Suspect]
     Active Substance: PHTHALYLSULFATHIAZOLE
  354. PHTHALYLSULFATHIAZOLE [Suspect]
     Active Substance: PHTHALYLSULFATHIAZOLE
     Dosage: 100 MILLIGRAM, BID
  355. PHTHALYLSULFATHIAZOLE [Suspect]
     Active Substance: PHTHALYLSULFATHIAZOLE
  356. PHTHALYLSULFATHIAZOLE [Suspect]
     Active Substance: PHTHALYLSULFATHIAZOLE
  357. PHTHALYLSULFATHIAZOLE [Suspect]
     Active Substance: PHTHALYLSULFATHIAZOLE
     Dosage: 1000 MILLIGRAM, BID (1 EVERY 12 HOURS)
  358. PHTHALYLSULFATHIAZOLE [Suspect]
     Active Substance: PHTHALYLSULFATHIAZOLE
  359. PHTHALYLSULFATHIAZOLE [Suspect]
     Active Substance: PHTHALYLSULFATHIAZOLE
  360. PREDNISONE [Suspect]
     Active Substance: PREDNISONE
     Indication: Rheumatoid arthritis
     Dosage: 20 MILLIGRAM, QD (1 EVERY 1 DAYS)
  361. PREDNISONE [Suspect]
     Active Substance: PREDNISONE
  362. PREDNISONE [Suspect]
     Active Substance: PREDNISONE
  363. PREDNISONE [Suspect]
     Active Substance: PREDNISONE
  364. PREDNISONE [Suspect]
     Active Substance: PREDNISONE
  365. PREDNISONE [Suspect]
     Active Substance: PREDNISONE
     Dosage: 50 MILLIGRAM, QD (1 EVERY 1 DAYS)
  366. PREDNISONE [Suspect]
     Active Substance: PREDNISONE
     Dosage: UNK, QD (1 EVERY 1 DAYS)
  367. PREDNISONE [Suspect]
     Active Substance: PREDNISONE
  368. PREDNISONE [Suspect]
     Active Substance: PREDNISONE
  369. PREDNISONE [Suspect]
     Active Substance: PREDNISONE
  370. PREDNISONE [Suspect]
     Active Substance: PREDNISONE
     Dosage: 50 MILLIGRAM, QD (1 EVERY 1 DAYS)
  371. PSEUDOEPHEDRINE HYDROCHLORIDE [Suspect]
     Active Substance: PSEUDOEPHEDRINE HYDROCHLORIDE
     Indication: Rheumatoid arthritis
  372. PSEUDOEPHEDRINE HYDROCHLORIDE [Suspect]
     Active Substance: PSEUDOEPHEDRINE HYDROCHLORIDE
  373. PSEUDOEPHEDRINE HYDROCHLORIDE [Suspect]
     Active Substance: PSEUDOEPHEDRINE HYDROCHLORIDE
  374. PSEUDOEPHEDRINE HYDROCHLORIDE [Suspect]
     Active Substance: PSEUDOEPHEDRINE HYDROCHLORIDE
  375. REMICADE [Suspect]
     Active Substance: INFLIXIMAB
     Indication: Rheumatoid arthritis
  376. REMICADE [Suspect]
     Active Substance: INFLIXIMAB
  377. REMICADE [Suspect]
     Active Substance: INFLIXIMAB
  378. REMICADE [Suspect]
     Active Substance: INFLIXIMAB
  379. REMICADE [Suspect]
     Active Substance: INFLIXIMAB
     Dosage: 500 MILLIGRAM, QD ( 1 EVERY 1 DAYS)
  380. REMICADE [Suspect]
     Active Substance: INFLIXIMAB
  381. REMICADE [Suspect]
     Active Substance: INFLIXIMAB
  382. HYDROCORTISONE ACETATE [Suspect]
     Active Substance: HYDROCORTISONE ACETATE
     Indication: Rheumatoid arthritis
  383. HYDROCORTISONE ACETATE [Suspect]
     Active Substance: HYDROCORTISONE ACETATE
  384. FLUMETHASONE PIVALATE [Suspect]
     Active Substance: FLUMETHASONE PIVALATE
     Indication: Product used for unknown indication
  385. FLUMETHASONE PIVALATE [Suspect]
     Active Substance: FLUMETHASONE PIVALATE
  386. DICLOFENAC SODIUM [Suspect]
     Active Substance: DICLOFENAC SODIUM
     Indication: Product used for unknown indication
  387. DICLOFENAC SODIUM [Suspect]
     Active Substance: DICLOFENAC SODIUM
  388. DICLOFENAC SODIUM [Suspect]
     Active Substance: DICLOFENAC SODIUM
  389. DICLOFENAC SODIUM [Suspect]
     Active Substance: DICLOFENAC SODIUM
  390. GOLD SODIUM THIOMALATE [Suspect]
     Active Substance: GOLD SODIUM THIOMALATE
     Indication: Product used for unknown indication
  391. METHYLPREDNISOLONE SODIUM SUCCINATE [Suspect]
     Active Substance: METHYLPREDNISOLONE SODIUM SUCCINATE
     Indication: Product used for unknown indication
  392. ACTEMRA [Suspect]
     Active Substance: TOCILIZUMAB
     Indication: Rheumatoid arthritis
  393. ACTEMRA [Suspect]
     Active Substance: TOCILIZUMAB
  394. ACTEMRA [Suspect]
     Active Substance: TOCILIZUMAB
  395. ACTEMRA [Suspect]
     Active Substance: TOCILIZUMAB
  396. ACTEMRA [Suspect]
     Active Substance: TOCILIZUMAB
  397. ACTEMRA [Suspect]
     Active Substance: TOCILIZUMAB
  398. ACTEMRA [Suspect]
     Active Substance: TOCILIZUMAB
  399. ACTEMRA [Suspect]
     Active Substance: TOCILIZUMAB
  400. ACTEMRA [Suspect]
     Active Substance: TOCILIZUMAB
  401. ACTEMRA [Suspect]
     Active Substance: TOCILIZUMAB
  402. ACTEMRA [Suspect]
     Active Substance: TOCILIZUMAB
  403. ACTEMRA [Suspect]
     Active Substance: TOCILIZUMAB
  404. ACTEMRA [Suspect]
     Active Substance: TOCILIZUMAB
     Dosage: 25 MILLIGRAM, QW (1 EVERY 1 WEEK)
  405. ACTEMRA [Suspect]
     Active Substance: TOCILIZUMAB
  406. ACTEMRA [Suspect]
     Active Substance: TOCILIZUMAB
  407. ACTEMRA [Suspect]
     Active Substance: TOCILIZUMAB
  408. ACTEMRA [Suspect]
     Active Substance: TOCILIZUMAB
  409. ACTEMRA [Suspect]
     Active Substance: TOCILIZUMAB
  410. DICLOFENAC SODIUM [Suspect]
     Active Substance: DICLOFENAC SODIUM
     Indication: Product used for unknown indication
  411. ASCORBIC ACID [Suspect]
     Active Substance: ASCORBIC ACID
     Indication: Product used for unknown indication
  412. AZATHIOPRINE [Suspect]
     Active Substance: AZATHIOPRINE
     Indication: Product used for unknown indication
  413. BERINERT [Suspect]
     Active Substance: HUMAN C1-ESTERASE INHIBITOR
     Indication: Product used for unknown indication
  414. BOTULINUM TOXIN TYPE A [Suspect]
     Active Substance: BOTULINUM TOXIN TYPE A
     Indication: Product used for unknown indication
  415. BUTRANS [Suspect]
     Active Substance: BUPRENORPHINE
     Indication: Product used for unknown indication
  416. CANDESARTAN [Suspect]
     Active Substance: CANDESARTAN
     Indication: Migraine
  417. CANDESARTAN [Suspect]
     Active Substance: CANDESARTAN
  418. CETIRIZINE [Suspect]
     Active Substance: CETIRIZINE HYDROCHLORIDE
     Indication: Rheumatoid arthritis
  419. CETIRIZINE [Suspect]
     Active Substance: CETIRIZINE HYDROCHLORIDE
  420. CETIRIZINE [Suspect]
     Active Substance: CETIRIZINE HYDROCHLORIDE
  421. CETIRIZINE [Suspect]
     Active Substance: CETIRIZINE HYDROCHLORIDE
  422. CETIRIZINE [Suspect]
     Active Substance: CETIRIZINE HYDROCHLORIDE
  423. CHOLECALCIFEROL [Suspect]
     Active Substance: CHOLECALCIFEROL
     Indication: Product used for unknown indication
  424. DOMPERIDONE MALEATE [Suspect]
     Active Substance: DOMPERIDONE MALEATE
     Indication: Product used for unknown indication
  425. FOLIC ACID [Suspect]
     Active Substance: FOLIC ACID
     Indication: Rheumatoid arthritis
  426. FOLIC ACID [Suspect]
     Active Substance: FOLIC ACID
  427. FOLIC ACID [Suspect]
     Active Substance: FOLIC ACID
  428. FOLIC ACID [Suspect]
     Active Substance: FOLIC ACID
  429. FOLIC ACID [Suspect]
     Active Substance: FOLIC ACID
  430. FOLIC ACID [Suspect]
     Active Substance: FOLIC ACID
  431. FOLIC ACID [Suspect]
     Active Substance: FOLIC ACID
  432. FOLIC ACID [Suspect]
     Active Substance: FOLIC ACID
  433. FOLIC ACID [Suspect]
     Active Substance: FOLIC ACID
  434. FOLIC ACID [Suspect]
     Active Substance: FOLIC ACID
  435. FOLIC ACID [Suspect]
     Active Substance: FOLIC ACID
  436. FOLIC ACID [Suspect]
     Active Substance: FOLIC ACID
  437. FOLIC ACID [Suspect]
     Active Substance: FOLIC ACID
  438. LAMICTAL [Suspect]
     Active Substance: LAMOTRIGINE
     Indication: Product used for unknown indication
  439. LAMICTAL [Suspect]
     Active Substance: LAMOTRIGINE
  440. LAMICTAL [Suspect]
     Active Substance: LAMOTRIGINE
     Dosage: 25 MILLIGRAM, BID (2 EVERY 1 DAYS)
  441. LAMICTAL [Suspect]
     Active Substance: LAMOTRIGINE
     Dosage: 50 MILLIGRAM, BID (1 EVERY 2 DAYS)
  442. LAMICTAL [Suspect]
     Active Substance: LAMOTRIGINE
  443. FLUMETHASONE PIVALATE\NEOMYCIN SULFATE [Suspect]
     Active Substance: FLUMETHASONE PIVALATE\NEOMYCIN SULFATE
     Indication: Product used for unknown indication
  444. MEGLUMINE [Suspect]
     Active Substance: MEGLUMINE
     Indication: Product used for unknown indication
  445. MYRBETRIQ [Suspect]
     Active Substance: MIRABEGRON
     Indication: Product used for unknown indication
  446. MYRBETRIQ [Suspect]
     Active Substance: MIRABEGRON
     Dosage: 1 DOSAGE FORMS, QD (1 EVERY 1 DAYS)
  447. NAPROXEN [Suspect]
     Active Substance: NAPROXEN
     Indication: Product used for unknown indication
  448. NAPROXEN SODIUM [Suspect]
     Active Substance: NAPROXEN SODIUM
     Indication: Rheumatoid arthritis
  449. VOLTAREN [Suspect]
     Active Substance: DICLOFENAC SODIUM
     Indication: Product used for unknown indication
  450. TRIAMCINOLONE ACETONIDE [Suspect]
     Active Substance: TRIAMCINOLONE ACETONIDE
     Indication: Rheumatoid arthritis
  451. TRIAMCINOLONE ACETONIDE [Suspect]
     Active Substance: TRIAMCINOLONE ACETONIDE
  452. TOPIRAMATE [Suspect]
     Active Substance: TOPIRAMATE
     Indication: Rheumatoid arthritis
     Dosage: 3 MILLIGRAM, QD (1 EVERY 1 DAYS)
  453. TOPIRAMATE [Suspect]
     Active Substance: TOPIRAMATE
  454. TOPIRAMATE [Suspect]
     Active Substance: TOPIRAMATE
     Dosage: 25 MILLIGRAM, QD (1 EVERY 1 DAYS)
  455. TOPIRAMATE [Suspect]
     Active Substance: TOPIRAMATE
     Dosage: 25 MILLIGRAM, BID (2 EVERY 1 DAYS)
  456. NUCALA [Suspect]
     Active Substance: MEPOLIZUMAB
     Indication: Product used for unknown indication
  457. OXYCODONE [Suspect]
     Active Substance: OXYCODONE
     Indication: Rheumatoid arthritis
  458. OXYCODONE TEREPHTHALATE [Suspect]
     Active Substance: OXYCODONE TEREPHTHALATE
     Indication: Product used for unknown indication
  459. PHENYLEPHRINE HYDROCHLORIDE [Suspect]
     Active Substance: PHENYLEPHRINE HYDROCHLORIDE
     Indication: Rheumatoid arthritis
  460. PHENYLEPHRINE HYDROCHLORIDE [Suspect]
     Active Substance: PHENYLEPHRINE HYDROCHLORIDE
  461. RAMIPRIL [Suspect]
     Active Substance: RAMIPRIL
     Indication: Rheumatoid arthritis
  462. RAMIPRIL [Suspect]
     Active Substance: RAMIPRIL
  463. RAMIPRIL [Suspect]
     Active Substance: RAMIPRIL
  464. RANITIDINE [Suspect]
     Active Substance: RANITIDINE
     Indication: Product used for unknown indication
  465. CETIRIZINE HYDROCHLORIDE\PSEUDOEPHEDRINE HYDROCHLORIDE [Suspect]
     Active Substance: CETIRIZINE HYDROCHLORIDE\PSEUDOEPHEDRINE HYDROCHLORIDE
     Indication: Rheumatoid arthritis
  466. CETIRIZINE HYDROCHLORIDE\PSEUDOEPHEDRINE HYDROCHLORIDE [Suspect]
     Active Substance: CETIRIZINE HYDROCHLORIDE\PSEUDOEPHEDRINE HYDROCHLORIDE
  467. CETIRIZINE HYDROCHLORIDE\PSEUDOEPHEDRINE HYDROCHLORIDE [Suspect]
     Active Substance: CETIRIZINE HYDROCHLORIDE\PSEUDOEPHEDRINE HYDROCHLORIDE
  468. CETIRIZINE HYDROCHLORIDE\PSEUDOEPHEDRINE HYDROCHLORIDE [Suspect]
     Active Substance: CETIRIZINE HYDROCHLORIDE\PSEUDOEPHEDRINE HYDROCHLORIDE
  469. HYDROXYCHLOROQUINE [Suspect]
     Active Substance: HYDROXYCHLOROQUINE
     Indication: Rheumatoid arthritis
     Dosage: 400 MILLIGRAM, QD
  470. HYDROXYCHLOROQUINE [Suspect]
     Active Substance: HYDROXYCHLOROQUINE
  471. HYDROXYCHLOROQUINE [Suspect]
     Active Substance: HYDROXYCHLOROQUINE
     Dosage: UNK, QD
  472. HYDROXYCHLOROQUINE [Suspect]
     Active Substance: HYDROXYCHLOROQUINE
     Dosage: UNK, QD
  473. HYDROXYCHLOROQUINE [Suspect]
     Active Substance: HYDROXYCHLOROQUINE
  474. AIMOVIG [Suspect]
     Active Substance: ERENUMAB-AOOE
     Indication: Migraine
  475. CALCIUM ASCORBATE [Suspect]
     Active Substance: CALCIUM ASCORBATE
     Indication: Product used for unknown indication
  476. CERTOLIZUMAB PEGOL [Suspect]
     Active Substance: CERTOLIZUMAB PEGOL
     Indication: Product used for unknown indication
  477. CERTOLIZUMAB PEGOL [Suspect]
     Active Substance: CERTOLIZUMAB PEGOL
  478. CERTOLIZUMAB PEGOL [Suspect]
     Active Substance: CERTOLIZUMAB PEGOL
  479. CERTOLIZUMAB PEGOL [Suspect]
     Active Substance: CERTOLIZUMAB PEGOL
  480. CERTOLIZUMAB PEGOL [Suspect]
     Active Substance: CERTOLIZUMAB PEGOL
  481. CETIRIZINE HYDROCHLORIDE [Suspect]
     Active Substance: CETIRIZINE HYDROCHLORIDE
     Indication: Rheumatoid arthritis
  482. CETIRIZINE HYDROCHLORIDE [Suspect]
     Active Substance: CETIRIZINE HYDROCHLORIDE
  483. MINOCIN [Suspect]
     Active Substance: MINOCYCLINE HYDROCHLORIDE
     Indication: Rheumatoid arthritis
  484. CETIRIZINE HYDROCHLORIDE [Suspect]
     Active Substance: CETIRIZINE HYDROCHLORIDE
     Indication: Rheumatoid arthritis
  485. CETIRIZINE HYDROCHLORIDE [Suspect]
     Active Substance: CETIRIZINE HYDROCHLORIDE
  486. CETIRIZINE HYDROCHLORIDE [Suspect]
     Active Substance: CETIRIZINE HYDROCHLORIDE
     Indication: Rheumatoid arthritis
  487. CETIRIZINE HYDROCHLORIDE [Suspect]
     Active Substance: CETIRIZINE HYDROCHLORIDE
  488. CETIRIZINE HYDROCHLORIDE [Suspect]
     Active Substance: CETIRIZINE HYDROCHLORIDE
     Indication: Rheumatoid arthritis
  489. CETIRIZINE HYDROCHLORIDE [Suspect]
     Active Substance: CETIRIZINE HYDROCHLORIDE
  490. CETIRIZINE HYDROCHLORIDE [Suspect]
     Active Substance: CETIRIZINE HYDROCHLORIDE
     Indication: Rheumatoid arthritis
  491. CETIRIZINE HYDROCHLORIDE [Suspect]
     Active Substance: CETIRIZINE HYDROCHLORIDE
  492. CORTISONE ACETATE [Suspect]
     Active Substance: CORTISONE ACETATE
     Indication: Rheumatoid arthritis
  493. CORTISONE ACETATE [Suspect]
     Active Substance: CORTISONE ACETATE
  494. COSENTYX [Suspect]
     Active Substance: SECUKINUMAB
     Indication: Psoriatic arthropathy
  495. COSENTYX [Suspect]
     Active Substance: SECUKINUMAB
     Indication: Rheumatoid arthritis
  496. DESOXIMETASONE [Suspect]
     Active Substance: DESOXIMETASONE
     Indication: Rheumatoid arthritis
  497. DESOXIMETASONE [Suspect]
     Active Substance: DESOXIMETASONE
  498. DESOXIMETASONE [Suspect]
     Active Substance: DESOXIMETASONE
  499. DESOXIMETASONE [Suspect]
     Active Substance: DESOXIMETASONE
  500. DESOXIMETASONE [Suspect]
     Active Substance: DESOXIMETASONE
  501. DESOXIMETASONE [Suspect]
     Active Substance: DESOXIMETASONE
  502. PSEUDOEPHEDRINE [Suspect]
     Active Substance: PSEUDOEPHEDRINE
     Indication: Rheumatoid arthritis
  503. PSEUDOEPHEDRINE [Suspect]
     Active Substance: PSEUDOEPHEDRINE
  504. PSEUDOEPHEDRINE [Suspect]
     Active Substance: PSEUDOEPHEDRINE
  505. PSEUDOEPHEDRINE [Suspect]
     Active Substance: PSEUDOEPHEDRINE
  506. DESOXIMETASONE [Suspect]
     Active Substance: DESOXIMETASONE
     Indication: Rheumatoid arthritis
  507. DESOXIMETASONE [Suspect]
     Active Substance: DESOXIMETASONE
  508. DESOXIMETASONE [Suspect]
     Active Substance: DESOXIMETASONE
  509. DESOXIMETASONE [Suspect]
     Active Substance: DESOXIMETASONE
  510. DESOXIMETASONE [Suspect]
     Active Substance: DESOXIMETASONE
  511. DESOXIMETASONE [Suspect]
     Active Substance: DESOXIMETASONE
  512. DICLOFENAC DIETHYLAMINE [Suspect]
     Active Substance: DICLOFENAC DIETHYLAMINE
     Indication: Product used for unknown indication
  513. FLUMETHASONE PIVALATE [Suspect]
     Active Substance: FLUMETHASONE PIVALATE
     Indication: Product used for unknown indication
  514. HAIR KERATIN AMINO ACIDS GOLD COMPLEX [Suspect]
     Active Substance: HAIR KERATIN AMINO ACIDS GOLD COMPLEX
     Indication: Product used for unknown indication
  515. GOLD SODIUM THIOMALATE [Suspect]
     Active Substance: GOLD SODIUM THIOMALATE
     Indication: Product used for unknown indication
  516. GOLD SODIUM THIOMALATE [Suspect]
     Active Substance: GOLD SODIUM THIOMALATE
  517. MINOCYCLINE [Suspect]
     Active Substance: MINOCYCLINE HYDROCHLORIDE
     Indication: Rheumatoid arthritis
  518. GOLIMUMAB [Suspect]
     Active Substance: GOLIMUMAB
     Indication: Rheumatoid arthritis
  519. GOLIMUMAB [Suspect]
     Active Substance: GOLIMUMAB
     Indication: Prostatic specific antigen
  520. GOLIMUMAB [Suspect]
     Active Substance: GOLIMUMAB
     Indication: Rheumatoid arthritis
  521. GOLIMUMAB [Suspect]
     Active Substance: GOLIMUMAB
     Indication: Prostatic specific antigen
  522. HYDROCORTISONE BUTYRATE [Suspect]
     Active Substance: HYDROCORTISONE BUTYRATE
     Indication: Rheumatoid arthritis
  523. TOCILIZUMAB [Suspect]
     Active Substance: TOCILIZUMAB
     Indication: Rheumatoid arthritis
  524. TOCILIZUMAB [Suspect]
     Active Substance: TOCILIZUMAB
  525. TOCILIZUMAB [Suspect]
     Active Substance: TOCILIZUMAB
  526. TOCILIZUMAB [Suspect]
     Active Substance: TOCILIZUMAB
  527. TOCILIZUMAB [Suspect]
     Active Substance: TOCILIZUMAB
  528. HUMIRA [Suspect]
     Active Substance: ADALIMUMAB
     Indication: Rheumatoid arthritis
  529. CETIRIZINE [Suspect]
     Active Substance: CETIRIZINE HYDROCHLORIDE
     Indication: Rheumatoid arthritis
  530. CETIRIZINE [Suspect]
     Active Substance: CETIRIZINE HYDROCHLORIDE
  531. CETIRIZINE [Suspect]
     Active Substance: CETIRIZINE HYDROCHLORIDE
  532. DICLOFENAC POTASSIUM [Suspect]
     Active Substance: DICLOFENAC POTASSIUM
     Indication: Product used for unknown indication
  533. ERENUMAB [Suspect]
     Active Substance: ERENUMAB
     Indication: Migraine
  534. ADALIMUMAB [Suspect]
     Active Substance: ADALIMUMAB
     Indication: Rheumatoid arthritis
  535. ADALIMUMAB [Suspect]
     Active Substance: ADALIMUMAB
  536. MEPOLIZUMAB [Suspect]
     Active Substance: MEPOLIZUMAB
     Indication: Product used for unknown indication
  537. RIBOFLAVIN [Suspect]
     Active Substance: RIBOFLAVIN
     Indication: Product used for unknown indication
  538. NICOTINAMIDE [Suspect]
     Active Substance: NIACINAMIDE
     Indication: Product used for unknown indication
  539. THIAMINE [Suspect]
     Active Substance: THIAMINE
     Indication: Product used for unknown indication
  540. ZINC [Suspect]
     Active Substance: ZINC
     Indication: Rheumatoid arthritis
  541. ACETAMINOPHEN AND CODEINE [Suspect]
     Active Substance: ACETAMINOPHEN\CODEINE PHOSPHATE
     Indication: Product used for unknown indication
  542. AIMOVIG [Suspect]
     Active Substance: ERENUMAB-AOOE
     Indication: Migraine
  543. ALENDRONATE SODIUM [Suspect]
     Active Substance: ALENDRONATE SODIUM
     Indication: Rheumatoid arthritis
  544. ALENDRONATE SODIUM [Suspect]
     Active Substance: ALENDRONATE SODIUM
  545. ALENDRONATE SODIUM\CHOLECALCIFEROL [Suspect]
     Active Substance: ALENDRONATE SODIUM\CHOLECALCIFEROL
     Indication: Rheumatoid arthritis
  546. DICLOFENAC SODIUM [Suspect]
     Active Substance: DICLOFENAC SODIUM
     Indication: Product used for unknown indication
  547. BETAMETHASONE [Suspect]
     Active Substance: BETAMETHASONE
     Indication: Product used for unknown indication
  548. BUPRENORPHINE [Suspect]
     Active Substance: BUPRENORPHINE
     Indication: Product used for unknown indication
  549. CHLORHEXIDINE GLUCONATE [Suspect]
     Active Substance: CHLORHEXIDINE GLUCONATE
     Indication: Product used for unknown indication
  550. CHLORHEXIDINE GLUCONATE [Suspect]
     Active Substance: CHLORHEXIDINE GLUCONATE
  551. CYCLOBENZAPRINE [Suspect]
     Active Substance: CYCLOBENZAPRINE
     Indication: Product used for unknown indication
     Dosage: 1 DOSAGE FORM, QD (1 EVERY 1 DAYS)
  552. DICLOFENAC POTASSIUM [Suspect]
     Active Substance: DICLOFENAC POTASSIUM
     Indication: Product used for unknown indication
  553. DOMPERIDONE MALEATE [Suspect]
     Active Substance: DOMPERIDONE MALEATE
     Indication: Product used for unknown indication
  554. FINACEA [Suspect]
     Active Substance: AZELAIC ACID
     Indication: Product used for unknown indication
  555. FOSAMAX [Suspect]
     Active Substance: ALENDRONATE SODIUM
     Indication: Rheumatoid arthritis
  556. FOSAMAX [Suspect]
     Active Substance: ALENDRONATE SODIUM
  557. FOSAMAX [Suspect]
     Active Substance: ALENDRONATE SODIUM
  558. HYDROXYCHLOROQUINE [Suspect]
     Active Substance: HYDROXYCHLOROQUINE
     Indication: Rheumatoid arthritis
     Dosage: 40 MILLIGRAM, QD (1 EVERY 1 DAYS)
  559. HYDROXYCHLOROQUINE [Suspect]
     Active Substance: HYDROXYCHLOROQUINE
  560. HYDROXYCHLOROQUINE [Suspect]
     Active Substance: HYDROXYCHLOROQUINE
     Dosage: 400 MILLIGRAM, QD (1 EVERY 1 DAYS)
  561. HYDROXYCHLOROQUINE [Suspect]
     Active Substance: HYDROXYCHLOROQUINE
  562. HYDROXYCHLOROQUINE [Suspect]
     Active Substance: HYDROXYCHLOROQUINE
     Dosage: 400 MILLIGRAM, QD (1 EVERY 1 DAYS)
  563. HYDROXYCHLOROQUINE [Suspect]
     Active Substance: HYDROXYCHLOROQUINE
  564. HYDROXYCHLOROQUINE [Suspect]
     Active Substance: HYDROXYCHLOROQUINE
  565. LAMOTRIGINE [Suspect]
     Active Substance: LAMOTRIGINE
     Indication: Product used for unknown indication
     Dosage: 25 MILLIGRAM, QD (1 EVERY 1 DAYS)
  566. LAMOTRIGINE [Suspect]
     Active Substance: LAMOTRIGINE
     Dosage: 25 MILLIGRAM, BID (2 EVERY 1 DAYS)
  567. LAMOTRIGINE [Suspect]
     Active Substance: LAMOTRIGINE
     Dosage: 50 MILLIGRAM, BID (2 EVERY 1 DAY)
  568. LEVOMILNACIPRAN [Suspect]
     Active Substance: LEVOMILNACIPRAN
     Indication: Product used for unknown indication
  569. MAGNESIUM CITRATE [Suspect]
     Active Substance: MAGNESIUM CITRATE
     Indication: Product used for unknown indication
  570. METHYLPREDNISOLONE SODIUM SUCCINATE [Suspect]
     Active Substance: METHYLPREDNISOLONE SODIUM SUCCINATE
     Indication: Rheumatoid arthritis
  571. ORENCIA [Suspect]
     Active Substance: ABATACEPT
     Indication: Rheumatoid arthritis
  572. PANTOPRAZOLE [Suspect]
     Active Substance: PANTOPRAZOLE
     Indication: Product used for unknown indication
  573. PHENYLEPHRINE HYDROCHLORIDE [Suspect]
     Active Substance: PHENYLEPHRINE HYDROCHLORIDE
     Indication: Rheumatoid arthritis
  574. RANITIDINE HYDROCHLORIDE [Suspect]
     Active Substance: RANITIDINE HYDROCHLORIDE
     Indication: Rheumatoid arthritis
  575. CETIRIZINE HYDROCHLORIDE\PSEUDOEPHEDRINE HYDROCHLORIDE [Suspect]
     Active Substance: CETIRIZINE HYDROCHLORIDE\PSEUDOEPHEDRINE HYDROCHLORIDE
     Indication: Rheumatoid arthritis
  576. CETIRIZINE HYDROCHLORIDE\PSEUDOEPHEDRINE HYDROCHLORIDE [Suspect]
     Active Substance: CETIRIZINE HYDROCHLORIDE\PSEUDOEPHEDRINE HYDROCHLORIDE
     Indication: Off label use
  577. CETIRIZINE HYDROCHLORIDE\PSEUDOEPHEDRINE HYDROCHLORIDE [Suspect]
     Active Substance: CETIRIZINE HYDROCHLORIDE\PSEUDOEPHEDRINE HYDROCHLORIDE
  578. CETIRIZINE HYDROCHLORIDE\PSEUDOEPHEDRINE HYDROCHLORIDE [Suspect]
     Active Substance: CETIRIZINE HYDROCHLORIDE\PSEUDOEPHEDRINE HYDROCHLORIDE
  579. CETIRIZINE HYDROCHLORIDE\PSEUDOEPHEDRINE HYDROCHLORIDE [Suspect]
     Active Substance: CETIRIZINE HYDROCHLORIDE\PSEUDOEPHEDRINE HYDROCHLORIDE
  580. DIETARY SUPPLEMENT\HERBALS [Suspect]
     Active Substance: DIETARY SUPPLEMENT\HERBALS
     Indication: Product used for unknown indication
  581. DIETARY SUPPLEMENT\HERBALS [Suspect]
     Active Substance: DIETARY SUPPLEMENT\HERBALS
     Indication: Product used for unknown indication
  582. TOFACITINIB [Suspect]
     Active Substance: TOFACITINIB
     Indication: Rheumatoid arthritis
     Dosage: 5 MILLIGRAM, BID (1 EVERY 12 HOUR)
  583. TOFACITINIB [Suspect]
     Active Substance: TOFACITINIB
     Dosage: 10 MILLIGRAM, QD (1 EVERY 1 DAYS)
  584. TRAMADOL HYDROCHLORIDE [Suspect]
     Active Substance: TRAMADOL HYDROCHLORIDE
     Indication: Product used for unknown indication
  585. XELJANZ [Suspect]
     Active Substance: TOFACITINIB CITRATE
     Indication: Rheumatoid arthritis
  586. NAPROXEN [Concomitant]
     Active Substance: NAPROXEN
     Dosage: 500 MILLIGRAM, QD
  587. DESOGESTREL\ETHINYL ESTRADIOL [Concomitant]
     Active Substance: DESOGESTREL\ETHINYL ESTRADIOL
  588. ADALIMUMAB [Suspect]
     Active Substance: ADALIMUMAB
     Indication: Rheumatoid arthritis
  589. ADALIMUMAB [Suspect]
     Active Substance: ADALIMUMAB
  590. ALENDRONIC ACID [Suspect]
     Active Substance: ALENDRONIC ACID
     Indication: Rheumatoid arthritis
  591. ALENDRONIC ACID [Suspect]
     Active Substance: ALENDRONIC ACID
  592. ALENDRONIC ACID [Suspect]
     Active Substance: ALENDRONIC ACID
  593. APREMILAST [Suspect]
     Active Substance: APREMILAST
     Indication: Rheumatoid arthritis
  594. APREMILAST [Suspect]
     Active Substance: APREMILAST
  595. HUMIRA [Suspect]
     Active Substance: ADALIMUMAB
     Indication: Rheumatoid arthritis
  596. HUMIRA [Suspect]
     Active Substance: ADALIMUMAB
  597. HUMIRA [Suspect]
     Active Substance: ADALIMUMAB
  598. INFLIXIMAB [Suspect]
     Active Substance: INFLIXIMAB
     Indication: Rheumatoid arthritis
  599. INFLIXIMAB [Suspect]
     Active Substance: INFLIXIMAB
  600. INFLIXIMAB [Suspect]
     Active Substance: INFLIXIMAB
  601. METFORMIN HYDROCHLORIDE [Suspect]
     Active Substance: METFORMIN HYDROCHLORIDE
     Indication: Rheumatoid arthritis
  602. MYOCHRYSINE [Suspect]
     Active Substance: GOLD SODIUM THIOMALATE
     Indication: Rheumatoid arthritis
  603. NAPROXEN [Suspect]
     Active Substance: NAPROXEN
     Indication: Product used for unknown indication
  604. NAPROXEN [Suspect]
     Active Substance: NAPROXEN
     Indication: Product used for unknown indication
  605. PHTHALYLSULFATHIAZOLE [Suspect]
     Active Substance: PHTHALYLSULFATHIAZOLE
     Indication: Rheumatoid arthritis
  606. PHTHALYLSULFATHIAZOLE [Suspect]
     Active Substance: PHTHALYLSULFATHIAZOLE
  607. PHTHALYLSULFATHIAZOLE [Suspect]
     Active Substance: PHTHALYLSULFATHIAZOLE
  608. PHTHALYLSULFATHIAZOLE [Suspect]
     Active Substance: PHTHALYLSULFATHIAZOLE
  609. PHTHALYLSULFATHIAZOLE [Suspect]
     Active Substance: PHTHALYLSULFATHIAZOLE
  610. PHTHALYLSULFATHIAZOLE [Suspect]
     Active Substance: PHTHALYLSULFATHIAZOLE
     Dosage: 2000 MILLIGRAM, QD (1 EVERY 1 DAY)
  611. SIMPONI [Suspect]
     Active Substance: GOLIMUMAB
     Indication: Rheumatoid arthritis
  612. SIMPONI [Suspect]
     Active Substance: GOLIMUMAB
  613. SIMPONI [Suspect]
     Active Substance: GOLIMUMAB
  614. SIMPONI [Suspect]
     Active Substance: GOLIMUMAB
  615. TETRACYCLINE HYDROCHLORIDE [Suspect]
     Active Substance: TETRACYCLINE HYDROCHLORIDE
     Indication: Rheumatoid arthritis
  616. TETRACYCLINE HYDROCHLORIDE [Suspect]
     Active Substance: TETRACYCLINE HYDROCHLORIDE
     Indication: Rheumatoid arthritis
  617. TOFACITINIB CITRATE [Suspect]
     Active Substance: TOFACITINIB CITRATE
     Indication: Rheumatoid arthritis
     Dosage: 10 MILLIGRAM, QD
  618. TRUXIMA [Suspect]
     Active Substance: RITUXIMAB-ABBS
     Indication: Rheumatoid arthritis
  619. TRUXIMA [Suspect]
     Active Substance: RITUXIMAB-ABBS
  620. TRUXIMA [Suspect]
     Active Substance: RITUXIMAB-ABBS
  621. TRUXIMA [Suspect]
     Active Substance: RITUXIMAB-ABBS
  622. TRUXIMA [Suspect]
     Active Substance: RITUXIMAB-ABBS
  623. TRUXIMA [Suspect]
     Active Substance: RITUXIMAB-ABBS
  624. TRUXIMA [Suspect]
     Active Substance: RITUXIMAB-ABBS
  625. TRUXIMA [Suspect]
     Active Substance: RITUXIMAB-ABBS
  626. TRUXIMA [Suspect]
     Active Substance: RITUXIMAB-ABBS
  627. TRUXIMA [Suspect]
     Active Substance: RITUXIMAB-ABBS
  628. XELJANZ [Suspect]
     Active Substance: TOFACITINIB CITRATE
     Indication: Rheumatoid arthritis
     Dosage: 10 MILLIGRAM, QD (1 EVERY 1 DAYS)
  629. XELJANZ [Suspect]
     Active Substance: TOFACITINIB CITRATE
     Dosage: 10 MILLIGRAM, QD (1 EVERY 1 DAYS)
  630. XELJANZ [Suspect]
     Active Substance: TOFACITINIB CITRATE
     Dosage: 20 MILLIGRAM, QD (1 EVERY 1 DAYS)
  631. XELJANZ [Suspect]
     Active Substance: TOFACITINIB CITRATE
  632. XELJANZ [Suspect]
     Active Substance: TOFACITINIB CITRATE
  633. XELJANZ [Suspect]
     Active Substance: TOFACITINIB CITRATE

REACTIONS (172)
  - Abdominal distension [Fatal]
  - Arthralgia [Fatal]
  - C-reactive protein abnormal [Fatal]
  - Condition aggravated [Fatal]
  - Gastrointestinal disorder [Fatal]
  - General physical health deterioration [Fatal]
  - Sleep disorder [Fatal]
  - Rheumatoid arthritis [Fatal]
  - Fatigue [Fatal]
  - Joint swelling [Fatal]
  - Hepatic enzyme increased [Fatal]
  - Insomnia [Fatal]
  - Pain [Fatal]
  - Dyspepsia [Fatal]
  - Malaise [Fatal]
  - Nausea [Fatal]
  - Hypersensitivity [Fatal]
  - Drug hypersensitivity [Fatal]
  - Pneumonia [Fatal]
  - Rash [Fatal]
  - Abdominal discomfort [Fatal]
  - Abdominal pain upper [Fatal]
  - Adverse reaction [Fatal]
  - Alopecia [Fatal]
  - Anti-cyclic citrullinated peptide antibody positive [Fatal]
  - Arthropathy [Fatal]
  - Asthenia [Fatal]
  - Blepharospasm [Fatal]
  - Blood cholesterol increased [Fatal]
  - Breast cancer stage III [Fatal]
  - C-reactive protein increased [Fatal]
  - Coeliac disease [Fatal]
  - Confusional state [Fatal]
  - Depression [Fatal]
  - Diarrhoea [Fatal]
  - Drug intolerance [Fatal]
  - Drug-induced liver injury [Fatal]
  - Duodenal ulcer perforation [Fatal]
  - Glossodynia [Fatal]
  - Grip strength decreased [Fatal]
  - Hand deformity [Fatal]
  - Headache [Fatal]
  - Hepatitis [Fatal]
  - Hypertension [Fatal]
  - Impaired healing [Fatal]
  - Infusion related reaction [Fatal]
  - Injection site reaction [Fatal]
  - Irritable bowel syndrome [Fatal]
  - Joint range of motion decreased [Fatal]
  - Lip dry [Fatal]
  - Live birth [Fatal]
  - Liver injury [Fatal]
  - Loss of personal independence in daily activities [Fatal]
  - Lower respiratory tract infection [Fatal]
  - Lung disorder [Fatal]
  - Memory impairment [Fatal]
  - Migraine [Fatal]
  - Muscle injury [Fatal]
  - Muscle spasms [Fatal]
  - Musculoskeletal pain [Fatal]
  - Musculoskeletal stiffness [Fatal]
  - Nail disorder [Fatal]
  - Nasopharyngitis [Fatal]
  - Night sweats [Fatal]
  - Obesity [Fatal]
  - Onychomadesis [Fatal]
  - Onychomycosis [Fatal]
  - Osteoarthritis [Fatal]
  - Paraesthesia [Fatal]
  - Pemphigus [Fatal]
  - Pericarditis [Fatal]
  - Peripheral swelling [Fatal]
  - Psoriatic arthropathy [Fatal]
  - Rheumatic fever [Fatal]
  - Stomatitis [Fatal]
  - Swelling [Fatal]
  - Synovitis [Fatal]
  - Systemic lupus erythematosus [Fatal]
  - Taste disorder [Fatal]
  - Type 2 diabetes mellitus [Fatal]
  - Urticaria [Fatal]
  - Vomiting [Fatal]
  - Weight increased [Fatal]
  - Wheezing [Fatal]
  - Wound [Fatal]
  - Wound infection [Fatal]
  - Back injury [Fatal]
  - Blister [Fatal]
  - Bursitis [Fatal]
  - Dizziness [Fatal]
  - Dry mouth [Fatal]
  - Epilepsy [Fatal]
  - Facet joint syndrome [Fatal]
  - Fall [Fatal]
  - Fibromyalgia [Fatal]
  - Finger deformity [Fatal]
  - Folliculitis [Fatal]
  - Gait inability [Fatal]
  - Gastrooesophageal reflux disease [Fatal]
  - Injury [Fatal]
  - Hypoaesthesia [Fatal]
  - Hypercholesterolaemia [Fatal]
  - Mobility decreased [Fatal]
  - Muscular weakness [Fatal]
  - Neck pain [Fatal]
  - Pain in extremity [Fatal]
  - Helicobacter infection [Fatal]
  - Inflammation [Fatal]
  - Dyspnoea [Fatal]
  - Peripheral venous disease [Fatal]
  - Liver function test increased [Fatal]
  - Ill-defined disorder [Fatal]
  - Adjustment disorder with depressed mood [Fatal]
  - Abdominal pain [Fatal]
  - Adverse event [Fatal]
  - Amnesia [Fatal]
  - Anxiety [Fatal]
  - Asthma [Fatal]
  - Autoimmune disorder [Fatal]
  - Back injury [Fatal]
  - Bone erosion [Fatal]
  - Breast cancer stage II [Fatal]
  - Chest pain [Fatal]
  - Contusion [Fatal]
  - Crohn^s disease [Fatal]
  - Decreased appetite [Fatal]
  - Deep vein thrombosis postoperative [Fatal]
  - Delirium [Fatal]
  - Disability [Fatal]
  - Dislocation of vertebra [Fatal]
  - Drug tolerance [Fatal]
  - Ear pain [Fatal]
  - Exostosis [Fatal]
  - Gait disturbance [Fatal]
  - Infection [Fatal]
  - Laryngitis [Fatal]
  - Liver disorder [Fatal]
  - Lower limb fracture [Fatal]
  - Lupus-like syndrome [Fatal]
  - Oedema [Fatal]
  - Pulmonary fibrosis [Fatal]
  - Pyrexia [Fatal]
  - Red blood cell sedimentation rate increased [Fatal]
  - Respiratory disorder [Fatal]
  - Rheumatoid factor positive [Fatal]
  - Sciatica [Fatal]
  - Sinusitis [Fatal]
  - Sleep disorder due to general medical condition, insomnia type [Fatal]
  - Swollen joint count increased [Fatal]
  - Ulcer haemorrhage [Fatal]
  - Walking aid user [Fatal]
  - Weight decreased [Fatal]
  - Treatment failure [Fatal]
  - X-ray abnormal [Fatal]
  - Treatment noncompliance [Fatal]
  - Medication error [Fatal]
  - Product quality issue [Fatal]
  - Product use issue [Fatal]
  - Therapy non-responder [Fatal]
  - Therapeutic product effect decreased [Fatal]
  - Contraindicated product administered [Fatal]
  - Drug ineffective [Fatal]
  - Therapeutic product effect incomplete [Fatal]
  - Product label confusion [Fatal]
  - Off label use [Fatal]
  - Product use in unapproved indication [Fatal]
  - Intentional product use issue [Fatal]
  - Incorrect product administration duration [Fatal]
  - Underdose [Fatal]
  - Exposure during pregnancy [Fatal]
  - Maternal exposure during pregnancy [Fatal]
  - Overdose [Fatal]
